FAERS Safety Report 9375060 (Version 1)
Quarter: 2013Q2

REPORT INFORMATION
  Report Type: Spontaneous
  Country: US (occurrence: US)
  Receive Date: 20130628
  Receipt Date: 20130628
  Transmission Date: 20140414
  Serious: Yes (Other)
  Sender: FDA-Public Use
  Company Number: US-NAPPMUNDI-USA-2013-0103618

PATIENT
  Sex: Male

DRUGS (3)
  1. OXYCONTIN (NDA 22-272) [Suspect]
     Indication: PAIN
     Dosage: UNK
     Route: 048
  2. OXYCONTIN (NDA 22-272) [Suspect]
     Dosage: 40 MG, UNK
     Route: 048
  3. OXYCONTIN (NDA 22-272) [Suspect]
     Dosage: 60 MG, DAILY
     Route: 048

REACTIONS (12)
  - Drug dependence [Not Recovered/Not Resolved]
  - Suicidal ideation [Unknown]
  - Personality disorder [Unknown]
  - Decreased activity [Unknown]
  - Drug withdrawal syndrome [Not Recovered/Not Resolved]
  - Intentional drug misuse [Unknown]
  - Depression [Unknown]
  - Hyperhidrosis [Unknown]
  - Muscle twitching [Unknown]
  - Anxiety [Unknown]
  - Agitation [Unknown]
  - Disturbance in attention [Unknown]
